FAERS Safety Report 8545901-8 (Version None)
Quarter: 2012Q3

REPORT INFORMATION
  Report Type: 
  Country: None (occurrence: None)
  Receive Date: 20120727
  Receipt Date: 20120329
  Transmission Date: 20120928
  Serious: No
  Sender: FDA-Public Use
  Company Number: US-ASTRAZENECA-2011SE70380

PATIENT
  Age: 65 Year
  Sex: Female

DRUGS (3)
  1. SEROQUEL [Suspect]
     Route: 048
  2. SEROQUEL [Suspect]
     Indication: DEPRESSION
     Route: 048
  3. SEROQUEL [Suspect]
     Dosage: TWO TABLETS OF 150 MG SEROQUEL XR EVERY EVENING
     Route: 048

REACTIONS (6)
  - TACHYCARDIA [None]
  - DEPRESSED MOOD [None]
  - ANXIETY [None]
  - PALPITATIONS [None]
  - INTENTIONAL DRUG MISUSE [None]
  - CARDIAC DISORDER [None]
